FAERS Safety Report 23649726 (Version 1)
Quarter: 2024Q1

REPORT INFORMATION
  Report Type: Spontaneous
  Country: NZ (occurrence: NZ)
  Receive Date: 20240319
  Receipt Date: 20240319
  Transmission Date: 20240410
  Serious: Yes (Hospitalization, Other)
  Sender: FDA-Public Use
  Company Number: NZ-AKCEA THERAPEUTICS-2020IS001569

PATIENT

DRUGS (24)
  1. TEGSEDI [Suspect]
     Active Substance: INOTERSEN SODIUM
     Indication: Product used for unknown indication
     Dosage: UNK, QW
     Route: 065
  2. TEGSEDI [Suspect]
     Active Substance: INOTERSEN SODIUM
     Dosage: UNK, BIWEEKLY
     Route: 065
     Dates: start: 20201008, end: 20201218
  3. TEGSEDI [Suspect]
     Active Substance: INOTERSEN SODIUM
     Dosage: UNK, EVERY 3 WEEKS
     Route: 065
     Dates: start: 20201218
  4. TACROLIMUS [Concomitant]
     Active Substance: TACROLIMUS
     Indication: Product used for unknown indication
     Dosage: 2 MG, TWICE DAILY
     Route: 065
  5. WARFARIN SODIUM [Concomitant]
     Active Substance: WARFARIN SODIUM
     Indication: Product used for unknown indication
     Dosage: AS PER INR
     Route: 065
  6. ASPIRIN [Concomitant]
     Active Substance: ASPIRIN
     Indication: Product used for unknown indication
     Dosage: 100MG, ONE TABLET DAILY
     Route: 065
  7. DROXIDOPA [Concomitant]
     Active Substance: DROXIDOPA
     Indication: Product used for unknown indication
     Dosage: 100 MG, ONE TABLET TDS
     Route: 065
  8. CHOLECALCIFEROL [Concomitant]
     Active Substance: CHOLECALCIFEROL
     Indication: Product used for unknown indication
     Dosage: 1.25 MG, ONT TABLET ONCE MONTHLY
     Route: 065
  9. GABAPENTIN [Concomitant]
     Active Substance: GABAPENTIN
     Indication: Product used for unknown indication
     Dosage: 100 MG MMID; 200 MG NOCTE
     Route: 065
  10. PANTOPRAZOLE [Concomitant]
     Active Substance: PANTOPRAZOLE
     Indication: Product used for unknown indication
     Dosage: 20 MG, ONE BD
     Route: 065
  11. B COMPLEX                          /00322001/ [Concomitant]
     Indication: Product used for unknown indication
     Dosage: TWICE DAILY
     Route: 065
  12. ZOPICLONE [Concomitant]
     Active Substance: ZOPICLONE
     Indication: Product used for unknown indication
     Dosage: 7.5 MG, ONE TABLET NOCTE PRN
     Route: 065
  13. FRUSEMIDE                          /00032601/ [Concomitant]
     Indication: Product used for unknown indication
     Dosage: #0MG MANE + 40MG AFT PRN
     Route: 065
  14. PYRIDOXINE [Concomitant]
     Active Substance: PYRIDOXINE
     Indication: Product used for unknown indication
     Dosage: 25 MG, ONE MANE
     Route: 065
  15. BUTYLSCOPOLAMINE BROMIDE [Concomitant]
     Active Substance: BUTYLSCOPOLAMINE BROMIDE
     Indication: Product used for unknown indication
     Dosage: 10 MG, ON BD
     Route: 065
  16. DOMPERIDONE [Concomitant]
     Active Substance: DOMPERIDONE
     Indication: Product used for unknown indication
     Dosage: 10 MG, ONE TDS
     Route: 065
  17. ONDANSETRON [Concomitant]
     Active Substance: ONDANSETRON
     Indication: Product used for unknown indication
     Dosage: 8 MG, ONE TABLET Q8H PRN
     Route: 065
  18. DOCUSATE + SENNA [Concomitant]
     Indication: Product used for unknown indication
     Dosage: 50MG/8MG, TWO MANE
     Route: 065
  19. KONSYL-D fibre supplement [Concomitant]
     Indication: Product used for unknown indication
     Dosage: 3 TSP, DAILY
     Route: 065
  20. CODEINE [Concomitant]
     Active Substance: CODEINE
     Indication: Product used for unknown indication
     Dosage: 30MG, ONE TABLET TDS PRN
     Route: 065
  21. ACETAMINOPHEN [Concomitant]
     Active Substance: ACETAMINOPHEN
     Indication: Product used for unknown indication
     Dosage: 1G, QID PRN
     Route: 065
  22. LOPERAMIDE [Concomitant]
     Active Substance: LOPERAMIDE
     Indication: Product used for unknown indication
     Dosage: 2 MG, ONE CAPSULE PRN
     Route: 065
  23. ENSURE TWOCAL [Concomitant]
     Indication: Product used for unknown indication
     Dosage: ONE SERVING QID
     Route: 065
  24. HYDROCORTISONE [Concomitant]
     Active Substance: HYDROCORTISONE
     Indication: Product used for unknown indication

REACTIONS (20)
  - Pharyngeal disorder [Unknown]
  - Thrombocytopenia [Recovering/Resolving]
  - Glomerular filtration rate decreased [Recovered/Resolved]
  - Haemoglobin decreased [Unknown]
  - Red blood cell count decreased [Unknown]
  - Haematocrit decreased [Unknown]
  - Mean cell volume decreased [Recovered/Resolved]
  - Mean cell haemoglobin decreased [Recovered/Resolved]
  - White blood cell count decreased [Unknown]
  - Neutrophil count decreased [Unknown]
  - Blood sodium decreased [Unknown]
  - Blood chloride decreased [Recovered/Resolved]
  - Blood creatinine increased [Recovered/Resolved]
  - Bowel movement irregularity [Unknown]
  - Hypervolaemia [Unknown]
  - Oedema peripheral [Unknown]
  - Hypotension [Unknown]
  - Red cell distribution width abnormal [Unknown]
  - Mean cell haemoglobin concentration abnormal [Unknown]
  - Hypoglycaemia [Unknown]

NARRATIVE: CASE EVENT DATE: 20200623
